FAERS Safety Report 23669976 (Version 1)
Quarter: 2024Q1

REPORT INFORMATION
  Report Type: Spontaneous
  Country: US (occurrence: US)
  Receive Date: 20240325
  Receipt Date: 20240325
  Transmission Date: 20240410
  Serious: No
  Sender: FDA-Public Use
  Company Number: US-SA-2024SA086161

PATIENT

DRUGS (1)
  1. ALDURAZYME [Suspect]
     Active Substance: LARONIDASE
     Indication: Mucopolysaccharidosis I
     Dosage: 17 MG, QW
     Route: 042
     Dates: start: 202305

REACTIONS (1)
  - Infusion site swelling [Recovering/Resolving]

NARRATIVE: CASE EVENT DATE: 20240312
